FAERS Safety Report 8243425-9 (Version None)
Quarter: 2012Q1

REPORT INFORMATION
  Report Type: 
  Country: None (occurrence: None)
  Receive Date: 20120329
  Receipt Date: 20120314
  Transmission Date: 20120608
  Serious: Yes (Hospitalization, Other)
  Sender: FDA-Public Use
  Company Number: US-ROCHE-1053679

PATIENT
  Sex: Female
  Weight: 55.388 kg

DRUGS (3)
  1. VENLAFAXINE [Concomitant]
     Indication: HOT FLUSH
     Route: 048
     Dates: start: 20120227, end: 20120319
  2. XELODA [Suspect]
     Route: 048
     Dates: start: 20120325
  3. XELODA [Suspect]
     Indication: COLON CANCER
     Route: 048
     Dates: start: 20120105, end: 20120322

REACTIONS (9)
  - DECREASED APPETITE [None]
  - PARAESTHESIA [None]
  - OROPHARYNGEAL PAIN [None]
  - FEELING ABNORMAL [None]
  - FATIGUE [None]
  - CRYING [None]
  - NAUSEA [None]
  - VOMITING [None]
  - HEADACHE [None]
